FAERS Safety Report 10057536 (Version 2)
Quarter: 2014Q2

REPORT INFORMATION
  Report Type: Spontaneous
  Country: US (occurrence: US)
  Receive Date: 20140404
  Receipt Date: 20140425
  Transmission Date: 20141212
  Serious: Yes (Other)
  Sender: FDA-Public Use
  Company Number: US-AMGEN-USASP2014022550

PATIENT
  Age: 26 Year
  Sex: Male

DRUGS (7)
  1. XGEVA [Suspect]
     Indication: BONE GIANT CELL TUMOUR
     Dosage: 120 MG, Q3MO
     Route: 058
     Dates: end: 201101
  2. VITAMIN D                          /00107901/ [Suspect]
     Indication: PRODUCT USED FOR UNKNOWN INDICATION
     Route: 065
  3. OXYCODONE [Concomitant]
     Route: 065
  4. HYDROMORPHONE [Concomitant]
     Route: 065
  5. GABAPENTIN [Concomitant]
     Route: 065
  6. METHOCARBAMOL [Concomitant]
     Route: 065
  7. CALCIUM [Concomitant]
     Route: 065

REACTIONS (2)
  - Osteonecrosis of jaw [Unknown]
  - Inappropriate schedule of drug administration [Unknown]
